FAERS Safety Report 7642946-7 (Version None)
Quarter: 2011Q3

REPORT INFORMATION
  Report Type: 
  Country: None (occurrence: None)
  Receive Date: 20110728
  Receipt Date: 20110215
  Transmission Date: 20111222
  Serious: No
  Sender: FDA-Public Use
  Company Number: US-BAYER-2011-047548

PATIENT
  Sex: Female

DRUGS (2)
  1. DESONATE [Suspect]
     Indication: DRY SKIN
  2. DESONATE [Suspect]
     Indication: ERYTHEMA

REACTIONS (1)
  - BURNING SENSATION [None]
